FAERS Safety Report 8496531-8 (Version None)
Quarter: 2012Q2

REPORT INFORMATION
  Report Type: 
  Country: None (occurrence: None)
  Receive Date: 20120629
  Receipt Date: 20120626
  Transmission Date: 20120825
  Serious: Yes (Disabling)
  Sender: FDA-Public Use
  Company Number: GB-DEXPHARM-20120760

PATIENT
  Age: 58 Year
  Sex: Female

DRUGS (10)
  1. CLOPIDOGREL [Suspect]
     Dates: start: 20120522
  2. ADCAL [Concomitant]
  3. ATORVASTATIN [Concomitant]
  4. LANSOPRAZOLE [Concomitant]
  5. LIDOCAINE HYDROCHLORIDE [Concomitant]
  6. RAMIPRIL [Concomitant]
  7. BENDROFLUMETHIAZIDE [Concomitant]
  8. ACETAMINOPHEN AND CODEINE PHOSPHATE [Concomitant]
  9. OMEPRAZOLE [Suspect]
     Dates: start: 20120307
  10. ASPIRIN [Concomitant]

REACTIONS (3)
  - ARTHRALGIA [None]
  - ALLERGIC OEDEMA [None]
  - DRUG INTERACTION [None]
